FAERS Safety Report 7629475-1 (Version None)
Quarter: 2011Q3

REPORT INFORMATION
  Report Type: 
  Country: None (occurrence: None)
  Receive Date: 20110722
  Receipt Date: 20110713
  Transmission Date: 20111222
  Serious: Yes (Hospitalization)
  Sender: FDA-Public Use
  Company Number: US-BAYER-201041415NA

PATIENT
  Age: 33 Year
  Sex: Female
  Weight: 97.506 kg

DRUGS (8)
  1. ZANTAC [Concomitant]
  2. YAZ [Suspect]
     Indication: ACNE
     Dosage: 1 DF, QD
     Route: 048
  3. YASMIN [Suspect]
     Indication: ACNE
     Dosage: UNK
     Route: 048
     Dates: start: 20030101, end: 20090101
  4. YASMIN [Suspect]
     Indication: POLYCYSTIC OVARIES
  5. DROSPIRENONE AND ETHINYL ESTRADIOL [Suspect]
     Indication: ACNE
     Dosage: UNK
     Dates: start: 20030101, end: 20090101
  6. DROSPIRENONE AND ETHINYL ESTRADIOL [Suspect]
     Indication: POLYCYSTIC OVARIES
  7. METROGEL [Concomitant]
  8. YAZ [Suspect]
     Indication: POLYCYSTIC OVARIES

REACTIONS (2)
  - BILIARY COLIC [None]
  - CHOLECYSTITIS [None]
